FAERS Safety Report 22717657 (Version 3)
Quarter: 2023Q4

REPORT INFORMATION
  Report Type: Spontaneous
  Country: JP (occurrence: JP)
  Receive Date: 20230718
  Receipt Date: 20231122
  Transmission Date: 20240110
  Serious: Yes (Hospitalization)
  Sender: FDA-Public Use
  Company Number: JP-ABBVIE-5312839

PATIENT
  Sex: Female
  Weight: 43 kg

DRUGS (7)
  1. HUMIRA [Suspect]
     Active Substance: ADALIMUMAB
     Indication: Psoriatic arthropathy
     Route: 058
     Dates: start: 20210412, end: 202106
  2. HUMIRA [Suspect]
     Active Substance: ADALIMUMAB
     Route: 058
     Dates: start: 20210118, end: 202103
  3. RINVOQ [Suspect]
     Active Substance: UPADACITINIB
     Indication: Psoriatic arthropathy
     Dosage: 15 MILLIGRAM
     Route: 048
     Dates: start: 20210628, end: 20230623
  4. CELECOXIB [Concomitant]
     Active Substance: CELECOXIB
     Indication: Psoriatic arthropathy
     Dosage: 200 MILLIGRAM
     Route: 048
     Dates: start: 20200824
  5. METHOTREXATE [Concomitant]
     Active Substance: METHOTREXATE
     Indication: Psoriatic arthropathy
     Dosage: 6 MG/WEEK
     Route: 048
     Dates: start: 20201102, end: 20211025
  6. METHOTREXATE [Concomitant]
     Active Substance: METHOTREXATE
     Indication: Psoriatic arthropathy
     Dosage: 6 MG/WEEK
     Route: 048
     Dates: start: 202105, end: 20211025
  7. ATORVASTATIN CALCIUM [Concomitant]
     Active Substance: ATORVASTATIN CALCIUM
     Indication: Dyslipidaemia
     Dosage: 5 MILLIGRAM
     Route: 048
     Dates: start: 20200914

REACTIONS (5)
  - Herpes zoster [Recovering/Resolving]
  - Injection site pruritus [Unknown]
  - Herpes zoster meningitis [Recovering/Resolving]
  - Cutaneous symptom [Unknown]
  - Neuralgia [Unknown]

NARRATIVE: CASE EVENT DATE: 20210101
